FAERS Safety Report 20611535 (Version 5)
Quarter: 2022Q2

REPORT INFORMATION
  Report Type: Spontaneous
  Country: US (occurrence: US)
  Receive Date: 20220318
  Receipt Date: 20220617
  Transmission Date: 20220721
  Serious: Yes (Hospitalization)
  Sender: FDA-Public Use
  Company Number: US-BAYER-2022A034828

PATIENT
  Age: 83 Year
  Sex: Female
  Weight: 66.3 kg

DRUGS (4)
  1. RIVAROXABAN [Suspect]
     Active Substance: RIVAROXABAN
     Indication: Diabetic foot
     Dosage: 2.5 MG, BID
     Route: 048
     Dates: start: 202201, end: 20220216
  2. OSOCIMAB [Suspect]
     Active Substance: OSOCIMAB
     Indication: End stage renal disease
     Dosage: 0.35 ML, Q4WK
     Route: 058
     Dates: start: 20201231, end: 20211209
  3. OSOCIMAB [Suspect]
     Active Substance: OSOCIMAB
     Indication: Haemodialysis
     Route: 058
  4. OSOCIMAB [Suspect]
     Active Substance: OSOCIMAB
     Indication: Thrombosis prophylaxis
     Route: 058

REACTIONS (1)
  - Gastrointestinal haemorrhage [Recovered/Resolved]

NARRATIVE: CASE EVENT DATE: 20220216
